FAERS Safety Report 5608012-7 (Version None)
Quarter: 2008Q1

REPORT INFORMATION
  Report Type: 
  Country: None (occurrence: None)
  Receive Date: 20080130
  Receipt Date: 20080128
  Transmission Date: 20080703
  Serious: Yes (Hospitalization)
  Sender: FDA-Public Use
  Company Number: A0667202A

PATIENT
  Age: 53 Year
  Sex: Female

DRUGS (3)
  1. ALLI [Suspect]
     Indication: WEIGHT LOSS DIET
     Dosage: 1CAP THREE TIMES PER DAY
     Route: 048
     Dates: start: 20070619, end: 20070629
  2. BENICAR [Concomitant]
     Dosage: 20MG PER DAY
  3. LEVOTHYROXINE SODIUM [Concomitant]
     Dosage: .9MG PER DAY

REACTIONS (5)
  - ABDOMINAL PAIN [None]
  - MUSCLE SPASMS [None]
  - MUSCULOSKELETAL CHEST PAIN [None]
  - PANCREATIC ENZYMES INCREASED [None]
  - PANCREATITIS ACUTE [None]
